FAERS Safety Report 10025159 (Version 2)
Quarter: 2014Q2

REPORT INFORMATION
  Report Type: Report from Study
  Country: CA (occurrence: CA)
  Receive Date: 20140320
  Receipt Date: 20140528
  Transmission Date: 20141212
  Serious: Yes (Hospitalization, Other)
  Sender: FDA-Public Use
  Company Number: CA-SA-2014SA032101

PATIENT
  Age: 57 Year
  Sex: Female
  Weight: 66.4 kg

DRUGS (26)
  1. FLUDARA [Suspect]
     Indication: CHRONIC LYMPHOCYTIC LEUKAEMIA
     Route: 065
     Dates: start: 200901, end: 200903
  2. CYCLOPHOSPHAMIDE [Suspect]
     Indication: CHRONIC LYMPHOCYTIC LEUKAEMIA
     Dosage: THERAPY DURATION: 181.0
     Route: 065
     Dates: start: 2009, end: 200907
  3. DOXORUBICIN [Suspect]
     Indication: CHRONIC LYMPHOCYTIC LEUKAEMIA
     Route: 065
  4. PREDNISOLONE [Suspect]
     Indication: CHRONIC LYMPHOCYTIC LEUKAEMIA
     Route: 065
  5. RITUXAN [Suspect]
     Indication: CHRONIC LYMPHOCYTIC LEUKAEMIA
     Dosage: DOSAGE FORM: SOLUTION INTRAVENOUS; 10MG/ML (STRENGTH)
     Route: 042
     Dates: start: 2009, end: 2009
  6. VINCRISTINE [Suspect]
     Indication: CHRONIC LYMPHOCYTIC LEUKAEMIA
     Route: 065
     Dates: start: 2009, end: 200907
  7. ACYCLOVIR [Concomitant]
     Route: 065
  8. ALENDRONATE SODIUM [Concomitant]
     Route: 065
  9. AMOXICILLIN [Concomitant]
     Route: 065
  10. ATIVAN [Concomitant]
     Route: 065
  11. CRESTOR [Concomitant]
     Dosage: DOSE: UNIT(S)
     Route: 065
  12. ESCITALOPRAM OXALATE [Concomitant]
     Route: 065
  13. LYRICA [Concomitant]
     Route: 065
  14. MEROPENEM [Concomitant]
     Route: 065
  15. MORPHINE [Concomitant]
     Route: 065
  16. PREMARIN [Concomitant]
     Route: 065
  17. STATEX [Concomitant]
     Route: 065
  18. WELLBUTRIN [Concomitant]
     Route: 065
  19. CALCIUM [Concomitant]
  20. VITAMIN D [Concomitant]
  21. IMMUNOGLOBULIN [Concomitant]
  22. PROGESTOGENS AND ESTROGENS IN COMBINATION [Concomitant]
  23. CORTISONE [Concomitant]
  24. CIPROFLOXACIN HYDROCHLORIDE [Concomitant]
     Indication: INFECTION PROPHYLAXIS
  25. VANCOMYCIN [Concomitant]
     Indication: INFECTION PROPHYLAXIS
     Dates: start: 2013
  26. MEROPENEM [Concomitant]
     Indication: INFECTION PROPHYLAXIS
     Dates: start: 2013

REACTIONS (7)
  - Bone marrow transplant [Unknown]
  - Cataract [Recovered/Resolved]
  - Full blood count decreased [Unknown]
  - Necrosis [Unknown]
  - No therapeutic response [Unknown]
  - Wound [Not Recovered/Not Resolved]
  - Graft versus host disease [Not Recovered/Not Resolved]
